FAERS Safety Report 15652039 (Version 2)
Quarter: 2021Q2

REPORT INFORMATION
  Report Type: Other
  Country: CN (occurrence: CN)
  Receive Date: 20181123
  Receipt Date: 20210618
  Transmission Date: 20210716
  Serious: Yes (Hospitalization)
  Sender: FDA-Public Use
  Company Number: CN-ROCHE-2220087

PATIENT
  Age: 65 Year
  Sex: Male
  Weight: 66 kg

DRUGS (7)
  1. ERLOTINIB [Suspect]
     Active Substance: ERLOTINIB
     Indication: LUNG ADENOCARCINOMA
     Route: 048
     Dates: start: 20160204, end: 20160206
  2. TACROLIMUS. [Suspect]
     Active Substance: TACROLIMUS
     Dosage: DOSE HALVED
     Route: 048
  3. LEVOFLOXACIN. [Concomitant]
     Active Substance: LEVOFLOXACIN
  4. TAZOBACTAM [Concomitant]
     Active Substance: TAZOBACTAM
  5. TACROLIMUS. [Suspect]
     Active Substance: TACROLIMUS
     Indication: PROPHYLAXIS AGAINST TRANSPLANT REJECTION
     Route: 048
     Dates: start: 2005, end: 20160206
  6. MYCOPHENOLATE MOFETIL. [Suspect]
     Active Substance: MYCOPHENOLATE MOFETIL
     Indication: PROPHYLAXIS AGAINST TRANSPLANT REJECTION
     Route: 048
  7. PIPERACILLIN. [Concomitant]
     Active Substance: PIPERACILLIN SODIUM

REACTIONS (11)
  - Nausea [Recovered/Resolved]
  - Immunosuppressant drug level increased [Recovered/Resolved]
  - Renal impairment [Recovered/Resolved]
  - Diarrhoea [Recovered/Resolved]
  - Metastasis [Unknown]
  - Lung adenocarcinoma [Unknown]
  - Off label use [Unknown]
  - Vomiting [Recovered/Resolved]
  - Interstitial lung disease [Unknown]
  - Pneumonia [Unknown]
  - Drug interaction [Unknown]
